FAERS Safety Report 15359407 (Version 2)
Quarter: 2020Q2

REPORT INFORMATION
  Report Type: Spontaneous
  Country: DE (occurrence: DE)
  Receive Date: 20180907
  Receipt Date: 20200409
  Transmission Date: 20200713
  Serious: Yes (Other)
  Sender: FDA-Public Use
  Company Number: DE-TEVA-2018-DE-952089

PATIENT
  Age: 37 Year
  Sex: Female
  Weight: 59.5 kg

DRUGS (4)
  1. PREDNISOLON 5 MG [Suspect]
     Active Substance: PREDNISOLONE
     Indication: RHEUMATOID ARTHRITIS
     Dosage: 5 MILLIGRAM DAILY; 5 [MG/D ]
     Route: 048
     Dates: start: 20170510, end: 20180209
  2. ENBREL [Suspect]
     Active Substance: ETANERCEPT
     Indication: RHEUMATOID ARTHRITIS
     Dosage: 50 [MG/D (1X EVERY 10 D) ]
     Route: 058
  3. L-THYROXIN 75 [Concomitant]
     Active Substance: LEVOTHYROXINE
     Indication: AUTOIMMUNE THYROIDITIS
     Dosage: 75 MICROGRAM DAILY; 75 [?G/D ]
     Route: 048
     Dates: start: 20170510, end: 20180209
  4. FOLIO FORTE [Concomitant]
     Active Substance: FOLIC ACID\VITAMINS
     Indication: PROPHYLAXIS OF NEURAL TUBE DEFECT
     Dosage: .8 MILLIGRAM DAILY; 0.8 [MG/D ]
     Route: 048
     Dates: start: 20170510, end: 20180209

REACTIONS (3)
  - Amniotic fluid volume increased [Recovered/Resolved]
  - Gestational diabetes [Recovered/Resolved]
  - Maternal exposure during pregnancy [Unknown]
